FAERS Safety Report 14988546 (Version 4)
Quarter: 2018Q3

REPORT INFORMATION
  Report Type: Spontaneous
  Country: US (occurrence: US)
  Receive Date: 20180608
  Receipt Date: 20180918
  Transmission Date: 20181010
  Serious: Yes (Life-Threatening, Hospitalization, Other)
  Sender: FDA-Public Use
  Company Number: US-PFIZER INC-2018231462

PATIENT
  Age: 82 Year
  Sex: Female
  Weight: 90.72 kg

DRUGS (8)
  1. LYRICA [Suspect]
     Active Substance: PREGABALIN
     Dosage: 100 MG, 2X/DAY
     Dates: start: 20180305
  2. COUMADIN [Suspect]
     Active Substance: WARFARIN SODIUM
     Dosage: 2 MG, 1X/DAY (ON THURSDAY)
     Route: 048
  3. COUMADIN [Suspect]
     Active Substance: WARFARIN SODIUM
     Dosage: 2 MG, 1X/DAY (ON MONDAY)
     Route: 048
  4. COUMADIN [Suspect]
     Active Substance: WARFARIN SODIUM
     Dosage: 2 MG, 1X/DAY (ON FRIDAY)
     Route: 048
  5. COUMADIN [Suspect]
     Active Substance: WARFARIN SODIUM
     Indication: ATRIAL FIBRILLATION
     Dosage: 4 MG, 1X/DAY (ON SUNDAY)
     Route: 048
  6. COUMADIN [Suspect]
     Active Substance: WARFARIN SODIUM
     Dosage: 4 MG, 1X/DAY (ON TUESDAY)
     Route: 048
  7. LYRICA [Suspect]
     Active Substance: PREGABALIN
     Dosage: 100 MG, 2X/DAY
     Route: 048
  8. COUMADIN [Suspect]
     Active Substance: WARFARIN SODIUM
     Dosage: 4 MG, 1X/DAY (ON SATURDAY)
     Route: 048

REACTIONS (2)
  - Haemorrhage [Recovered/Resolved with Sequelae]
  - Thrombosis [Recovered/Resolved]

NARRATIVE: CASE EVENT DATE: 20180529
